FAERS Safety Report 7350461-3 (Version None)
Quarter: 2011Q1

REPORT INFORMATION
  Report Type: 
  Country: None (occurrence: None)
  Receive Date: 20110314
  Receipt Date: 20110303
  Transmission Date: 20110831
  Serious: Yes (Other)
  Sender: FDA-Public Use
  Company Number: FR-ELI_LILLY_AND_COMPANY-FR201103001906

PATIENT
  Age: 51 Year
  Sex: Female

DRUGS (3)
  1. CYMBALTA [Suspect]
     Indication: DIABETIC NEUROPATHY
     Dosage: 60 MG, DAILY (1/D)
     Dates: start: 20100101, end: 20101201
  2. CYMBALTA [Suspect]
     Dosage: 60 MG, QOD
     Dates: start: 20101201
  3. CYMBALTA [Suspect]
     Dosage: 30 MG, DAILY (1/D)

REACTIONS (7)
  - DRUG WITHDRAWAL SYNDROME [None]
  - SPEECH DISORDER [None]
  - SUICIDAL IDEATION [None]
  - DIZZINESS [None]
  - FATIGUE [None]
  - COORDINATION ABNORMAL [None]
  - AMNESIA [None]
